FAERS Safety Report 9065817 (Version 9)
Quarter: 2018Q4

REPORT INFORMATION
  Report Type: Report from Study
  Country: DE (occurrence: DE)
  Receive Date: 20130206
  Receipt Date: 20181227
  Transmission Date: 20190205
  Serious: Yes (Life-Threatening, Hospitalization, Other)
  Sender: FDA-Public Use
  Company Number: PHHY2013DE003856

PATIENT
  Age: 47 Year
  Sex: Female
  Weight: 57 kg

DRUGS (3)
  1. GILENYA [Suspect]
     Active Substance: FINGOLIMOD HYDROCHLORIDE
     Indication: MULTIPLE SCLEROSIS
     Dosage: 0.5 MG, QD
     Route: 048
     Dates: start: 20110714, end: 20130114
  2. GILENYA [Suspect]
     Active Substance: FINGOLIMOD HYDROCHLORIDE
     Dosage: 0.5 MG, QD
     Route: 048
     Dates: start: 20130124, end: 20130206
  3. VESIKUR [Concomitant]
     Active Substance: SOLIFENACIN SUCCINATE
     Indication: URGE INCONTINENCE
     Dosage: 5 MG, QD
     Route: 048
     Dates: start: 20110116

REACTIONS (13)
  - Procedural headache [Recovering/Resolving]
  - Micturition urgency [Unknown]
  - Platelet count increased [Unknown]
  - Gait disturbance [Recovered/Resolved]
  - Neutrophil percentage increased [Unknown]
  - Hemianopia [Not Recovered/Not Resolved]
  - Headache [Recovered/Resolved]
  - Lymphopenia [Recovered/Resolved]
  - Procedural nausea [Recovering/Resolving]
  - Gliosarcoma [Not Recovered/Not Resolved]
  - Cerebral haemorrhage [Recovered/Resolved]
  - Disorientation [Recovered/Resolved]
  - Haemoglobin decreased [Recovering/Resolving]

NARRATIVE: CASE EVENT DATE: 20130111
